FAERS Safety Report 6187152-0 (Version None)
Quarter: 2009Q2

REPORT INFORMATION
  Report Type: 
  Country: None (occurrence: None)
  Receive Date: 20090507
  Receipt Date: 20090304
  Transmission Date: 20091009
  Serious: Yes (Other)
  Sender: FDA-Public Use
  Company Number: 619178

PATIENT
  Age: 68 Year
  Sex: Male

DRUGS (2)
  1. NAPROSYN [Suspect]
     Indication: BACK PAIN
     Dosage: 3000 MG DAILY
     Dates: end: 20081201
  2. COUMADIN [Concomitant]

REACTIONS (2)
  - ECCHYMOSIS [None]
  - PURPURA [None]
